FAERS Safety Report 18558422 (Version 1)
Quarter: 2020Q4

REPORT INFORMATION
  Report Type: Spontaneous
  Country: US (occurrence: US)
  Receive Date: 20201125
  Receipt Date: 20201125
  Transmission Date: 20210114
  Serious: Yes (Hospitalization)
  Sender: FDA-Public Use
  Company Number: None

PATIENT
  Age: 91 Year
  Sex: Male
  Weight: 76.5 kg

DRUGS (13)
  1. BAMLANIVIMAB. [Suspect]
     Active Substance: BAMLANIVIMAB
     Indication: COVID-19
     Dosage: ?          OTHER FREQUENCY:ONCE;?
     Route: 040
     Dates: start: 20201118, end: 20201118
  2. APIXABAN [Concomitant]
     Active Substance: APIXABAN
  3. ASPIRIN. [Concomitant]
     Active Substance: ASPIRIN
  4. TORSEMIDE. [Concomitant]
     Active Substance: TORSEMIDE
  5. LEVOTHYROXINE. [Concomitant]
     Active Substance: LEVOTHYROXINE
  6. FISH OIL [Concomitant]
     Active Substance: FISH OIL
  7. SPIROLACTONE [Concomitant]
     Active Substance: SPIRONOLACTONE
  8. CARVEDILOL. [Concomitant]
     Active Substance: CARVEDILOL
  9. PRAVASTATIN. [Concomitant]
     Active Substance: PRAVASTATIN
  10. HYDROXYZINE [Concomitant]
     Active Substance: HYDROXYZINE HYDROCHLORIDE
  11. DEXAMETHASONE. [Concomitant]
     Active Substance: DEXAMETHASONE
     Dates: start: 20201119
  12. FINASTERIDE. [Concomitant]
     Active Substance: FINASTERIDE
  13. ZOLPIDEM [Concomitant]
     Active Substance: ZOLPIDEM TARTRATE

REACTIONS (4)
  - Pain [None]
  - Body temperature increased [None]
  - Oxygen saturation decreased [None]
  - Chills [None]

NARRATIVE: CASE EVENT DATE: 20201118
